FAERS Safety Report 6868614-7 (Version None)
Quarter: 2010Q3

REPORT INFORMATION
  Report Type: 
  Country: None (occurrence: None)
  Receive Date: 20100722
  Receipt Date: 20080717
  Transmission Date: 20110219
  Serious: No
  Sender: FDA-Public Use
  Company Number: US-PFIZER INC-2008046408

PATIENT
  Sex: Male
  Weight: 58.97 kg

DRUGS (8)
  1. CHANTIX [Suspect]
     Indication: SMOKING CESSATION THERAPY
     Route: 048
     Dates: start: 20080427
  2. ATENOLOL [Concomitant]
  3. NAPROXEN [Concomitant]
  4. FOLIC ACID [Concomitant]
  5. MULTI-VITAMINS [Concomitant]
  6. POTASSIUM CHLORIDE [Concomitant]
  7. THIAMINE HCL [Concomitant]
  8. VITAMIN B COMPLEX CAP [Concomitant]

REACTIONS (4)
  - ABNORMAL DREAMS [None]
  - NAUSEA [None]
  - SCREAMING [None]
  - SLEEP DISORDER [None]
